FAERS Safety Report 7408512-3 (Version None)
Quarter: 2011Q2

REPORT INFORMATION
  Report Type: 
  Country: None (occurrence: None)
  Receive Date: 20110412
  Receipt Date: 20110405
  Transmission Date: 20111010
  Serious: Yes (Life-Threatening, Hospitalization)
  Sender: FDA-Public Use
  Company Number: FR-SANOFI-AVENTIS-2011SA020439

PATIENT
  Age: 72 Year
  Sex: Female

DRUGS (10)
  1. MULTAQ [Suspect]
     Route: 048
     Dates: start: 20101109, end: 20110126
  2. PANTOPRAZOLE [Concomitant]
     Route: 048
     Dates: end: 20110126
  3. KARDEGIC [Concomitant]
     Route: 048
     Dates: end: 20110126
  4. AMARYL [Concomitant]
     Route: 048
     Dates: end: 20110126
  5. LASIX [Concomitant]
     Route: 048
     Dates: end: 20110126
  6. PREVISCAN [Concomitant]
     Dosage: 10 MG EVEN DAY AND 15 MG ODD DAY
     Route: 048
     Dates: end: 20110126
  7. DIFFU K [Concomitant]
     Dosage: DOSE:1 UNIT(S)
     Route: 048
     Dates: end: 20110126
  8. DEROXAT [Concomitant]
     Route: 048
     Dates: end: 20110126
  9. DAFALGAN [Suspect]
     Route: 048
     Dates: end: 20110126
  10. LEVOTHYROX [Concomitant]
     Route: 048
     Dates: end: 20110126

REACTIONS (3)
  - CYTOLYTIC HEPATITIS [None]
  - CARDIAC FAILURE [None]
  - RENAL FAILURE ACUTE [None]
